FAERS Safety Report 13688466 (Version 1)
Quarter: 2017Q2

REPORT INFORMATION
  Report Type: Spontaneous
  Country: US (occurrence: US)
  Receive Date: 20170623
  Receipt Date: 20170623
  Transmission Date: 20170830
  Serious: Yes (Disabling)
  Sender: FDA-Public Use
  Company Number: None

PATIENT
  Age: 46 Year
  Sex: Female
  Weight: 76.5 kg

DRUGS (2)
  1. ATELENOL [Concomitant]
  2. STELARA [Suspect]
     Active Substance: USTEKINUMAB
     Indication: PSORIASIS
     Dosage: ?          OTHER FREQUENCY:4X YEAR;?
     Route: 058
     Dates: start: 20120215, end: 20170601

REACTIONS (1)
  - Thyroid disorder [None]

NARRATIVE: CASE EVENT DATE: 20170208
